FAERS Safety Report 23182448 (Version 2)
Quarter: 2023Q4

REPORT INFORMATION
  Report Type: Spontaneous
  Country: TW (occurrence: TW)
  Receive Date: 20231114
  Receipt Date: 20231205
  Transmission Date: 20240109
  Serious: Yes (Other)
  Sender: FDA-Public Use
  Company Number: TW-BIOGEN-2023BI01235323

PATIENT
  Age: 8 Year
  Sex: Male
  Weight: 41 kg

DRUGS (1)
  1. SPINRAZA [Suspect]
     Active Substance: NUSINERSEN
     Indication: Spinal muscular atrophy
     Route: 050
     Dates: start: 20200923

REACTIONS (1)
  - CSF pressure increased [Unknown]

NARRATIVE: CASE EVENT DATE: 20231107
